FAERS Safety Report 18238077 (Version 4)
Quarter: 2020Q4

REPORT INFORMATION
  Report Type: Spontaneous
  Country: FR (occurrence: FR)
  Receive Date: 20200907
  Receipt Date: 20201216
  Transmission Date: 20210113
  Serious: Yes (Death, Life-Threatening, Hospitalization)
  Sender: FDA-Public Use
  Company Number: FR-BAXTER-2020BAX017271

PATIENT
  Age: 68 Year
  Sex: Male
  Weight: 97 kg

DRUGS (5)
  1. ENDOXAN 1000 MG, POUDRE POUR SOLUTIONINJECTABLE [Suspect]
     Active Substance: CYCLOPHOSPHAMIDE
     Indication: LYMPHOMA
     Route: 042
     Dates: start: 20200731, end: 20200731
  2. VINCRISTINE (SULFATE) [Suspect]
     Active Substance: VINCRISTINE SULFATE
     Indication: LYMPHOMA
     Dosage: 0.8 MG/DAY
     Route: 041
     Dates: start: 20200731, end: 20200808
  3. SOLUPRED (PREDNISOLONE METASULFOBENZOATE SODIUM) [Suspect]
     Active Substance: PREDNISOLONE SODIUM METAZOATE
     Indication: LYMPHOMA
     Route: 048
     Dates: start: 20200730, end: 20200805
  4. ETOPOPHOS [Concomitant]
     Active Substance: ETOPOSIDE PHOSPHATE
     Indication: LYMPHOMA
     Route: 041
     Dates: start: 20200807, end: 20200808
  5. DOXORUBICIN TEVA [Concomitant]
     Active Substance: DOXORUBICIN
     Indication: LYMPHOMA
     Route: 041
     Dates: start: 20200807, end: 20200808

REACTIONS (3)
  - Haemophagocytic lymphohistiocytosis [Fatal]
  - Blood bilirubin increased [Fatal]
  - Hepatitis [Fatal]

NARRATIVE: CASE EVENT DATE: 202008
